FAERS Safety Report 14726656 (Version 5)
Quarter: 2019Q4

REPORT INFORMATION
  Report Type: Report from Study
  Country: US (occurrence: US)
  Receive Date: 20180406
  Receipt Date: 20191108
  Transmission Date: 20200122
  Serious: Yes (Other)
  Sender: FDA-Public Use
  Company Number: US-ROCHE-2100958

PATIENT
  Age: 37 Year
  Sex: Female
  Weight: 140.29 kg

DRUGS (11)
  1. OCREVUS [Suspect]
     Active Substance: OCRELIZUMAB
     Indication: PROGRESSIVE MULTIPLE SCLEROSIS
     Dosage: ONGOING: YES
     Route: 042
  2. OCREVUS [Suspect]
     Active Substance: OCRELIZUMAB
     Route: 042
     Dates: start: 201802
  3. BENADRYL [Concomitant]
     Active Substance: DIPHENHYDRAMINE HYDROCHLORIDE
     Dosage: DURING SECOND INFUSION
     Route: 042
  4. TYLENOL [Concomitant]
     Active Substance: ACETAMINOPHEN
     Indication: PREMEDICATION
     Dosage: ONGOING: UNKNOWN
     Route: 065
  5. ESOMEPRAZOLE MAGNESIUM. [Concomitant]
     Active Substance: ESOMEPRAZOLE MAGNESIUM
     Dosage: ONGOING YES, 1 TAB-2 TIMES A DAY
     Route: 065
  6. ONDANSETRON [Concomitant]
     Active Substance: ONDANSETRON
     Dosage: ONGOING YES,
     Route: 065
  7. BENADRYL [Concomitant]
     Active Substance: DIPHENHYDRAMINE HYDROCHLORIDE
     Indication: PREMEDICATION
     Dosage: ONGOING: UNKNOWN?DURING 1ST INFUSION
     Route: 048
  8. VALTREX [Suspect]
     Active Substance: VALACYCLOVIR HYDROCHLORIDE
     Indication: HERPES ZOSTER
     Route: 065
     Dates: start: 201802
  9. SOLU-MEDROL [Concomitant]
     Active Substance: METHYLPREDNISOLONE SODIUM SUCCINATE
     Indication: PREMEDICATION
     Dosage: ONGOING: UNKNOWN
     Route: 065
  10. RANITIDINE. [Concomitant]
     Active Substance: RANITIDINE
     Dosage: ONGOING YES, 1 TAB-2 TIMES A DAY
     Route: 065
     Dates: start: 2018
  11. PROMETHAZINE [Concomitant]
     Active Substance: PROMETHAZINE HYDROCHLORIDE
     Dosage: ONGOING YES, 6.25MG PER/5ML, BEFORE NIGHT TIME MED
     Route: 065
     Dates: start: 2018

REACTIONS (15)
  - Multiple sclerosis relapse [Unknown]
  - Fall [Recovered/Resolved]
  - Pain [Unknown]
  - Nervous system disorder [Recovered/Resolved]
  - Dysarthria [Recovered/Resolved]
  - Cognitive disorder [Unknown]
  - Tremor [Unknown]
  - Vomiting [Unknown]
  - Migraine [Recovered/Resolved]
  - Nausea [Unknown]
  - Herpes zoster [Recovered/Resolved]
  - Headache [Recovered/Resolved]
  - Heart rate decreased [Unknown]
  - Pruritus [Recovered/Resolved]
  - Oedema [Unknown]

NARRATIVE: CASE EVENT DATE: 201802
